FAERS Safety Report 5830652-0 (Version None)
Quarter: 2008Q3

REPORT INFORMATION
  Report Type: 
  Country: None (occurrence: None)
  Receive Date: 20080801
  Receipt Date: 20070913
  Transmission Date: 20090109
  Serious: No
  Sender: FDA-Public Use
  Company Number: US-BRISTOL-MYERS SQUIBB COMPANY-13907837

PATIENT
  Age: 89 Year
  Sex: Female
  Weight: 56 kg

DRUGS (4)
  1. COUMADIN [Suspect]
     Dosage: THERAPY DURATION 3-4 WEEKS.
  2. DIGOXIN [Concomitant]
  3. FOSAMAX [Concomitant]
  4. CALCIUM [Concomitant]

REACTIONS (2)
  - BACK PAIN [None]
  - OEDEMA PERIPHERAL [None]
